FAERS Safety Report 7875776-1 (Version None)
Quarter: 2011Q4

REPORT INFORMATION
  Report Type: 
  Country: None (occurrence: None)
  Receive Date: 20111031
  Receipt Date: 20111024
  Transmission Date: 20120403
  Serious: Yes (Death, Other)
  Sender: FDA-Public Use
  Company Number: FR-JNJFOC-20111012864

PATIENT

DRUGS (33)
  1. ELDISINE [Suspect]
     Indication: LYMPHOMA
     Route: 065
  2. ELDISINE [Suspect]
     Route: 065
  3. BLEOMYCIN SULFATE [Suspect]
     Route: 042
  4. CYCLOPHOSPHAMIDE [Suspect]
     Route: 065
  5. MESNA [Suspect]
     Route: 042
  6. METHOTREXATE [Suspect]
     Indication: LYMPHOMA
     Route: 037
  7. MESNA [Suspect]
     Indication: LYMPHOMA
     Route: 042
  8. PREDNISONE [Suspect]
     Indication: LYMPHOMA
     Route: 048
  9. ETOPOSIDE [Suspect]
     Indication: LYMPHOMA
     Route: 065
  10. IFOSFAMIDE [Suspect]
     Route: 065
  11. DOXORUBICIN HCL [Suspect]
     Route: 042
  12. DOXORUBICIN HCL [Suspect]
     Route: 042
  13. DOXORUBICIN HCL [Suspect]
     Route: 042
  14. CYCLOPHOSPHAMIDE [Suspect]
     Indication: LYMPHOMA
     Route: 065
  15. CYCLOPHOSPHAMIDE [Suspect]
     Route: 065
  16. MESNA [Suspect]
     Route: 042
  17. METHOTREXATE [Suspect]
     Route: 065
  18. IFOSFAMIDE [Suspect]
     Indication: LYMPHOMA
     Route: 065
  19. IFOSFAMIDE [Suspect]
     Route: 065
  20. LEUCOVORIN CALCIUM [Concomitant]
     Route: 065
  21. ELDISINE [Suspect]
     Route: 065
  22. BLEOMYCIN SULFATE [Suspect]
     Route: 042
  23. NEUPOGEN [Concomitant]
     Route: 065
  24. BLEOMYCIN SULFATE [Suspect]
     Route: 042
  25. CYTARABINE [Suspect]
     Indication: LYMPHOMA
     Route: 065
  26. BLEOMYCIN SULFATE [Suspect]
     Indication: LYMPHOMA
     Route: 042
  27. IFOSFAMIDE [Suspect]
     Route: 065
  28. DOXORUBICIN HCL [Suspect]
     Indication: LYMPHOMA
     Route: 042
  29. CYCLOPHOSPHAMIDE [Suspect]
     Route: 065
  30. MESNA [Suspect]
     Route: 042
  31. ELDISINE [Suspect]
     Route: 065
  32. CYTARABINE [Suspect]
     Route: 065
  33. METHOTREXATE [Suspect]
     Route: 065

REACTIONS (1)
  - CARDIAC FAILURE [None]
